FAERS Safety Report 17322882 (Version 1)
Quarter: 2020Q1

REPORT INFORMATION
  Report Type: Spontaneous
  Country: US (occurrence: US)
  Receive Date: 20200127
  Receipt Date: 20200127
  Transmission Date: 20200409
  Serious: No
  Sender: FDA-Public Use
  Company Number: US-ACORDA-ACO_162096_2019

PATIENT
  Age: 49 Year
  Sex: Female

DRUGS (3)
  1. AMPYRA [Suspect]
     Active Substance: DALFAMPRIDINE
     Indication: GAIT DISTURBANCE
     Dosage: 10 MILLIGRAM, Q 12 HRS
     Route: 048
  2. TECFIDERA [Suspect]
     Active Substance: DIMETHYL FUMARATE
     Indication: MULTIPLE SCLEROSIS
     Dosage: 120 MILLIGRAM, BID (STARTING DOSE)
     Route: 048
     Dates: start: 20130724
  3. TECFIDERA [Suspect]
     Active Substance: DIMETHYL FUMARATE
     Dosage: 240 MILLIGRAM, BID (MAINTENANCE  DOSE)
     Route: 048

REACTIONS (5)
  - Somnolence [Unknown]
  - Visual impairment [Not Recovered/Not Resolved]
  - Gait disturbance [Unknown]
  - Confusional state [Unknown]
  - Amnesia [Unknown]

NARRATIVE: CASE EVENT DATE: 20191107
